FAERS Safety Report 20630465 (Version 3)
Quarter: 2023Q2

REPORT INFORMATION
  Report Type: Spontaneous
  Country: JP (occurrence: JP)
  Receive Date: 20220324
  Receipt Date: 20230626
  Transmission Date: 20230722
  Serious: Yes (Death, Other)
  Sender: FDA-Public Use
  Company Number: JP-ABBVIE-22K-087-4328356-00

PATIENT
  Age: 57 Year
  Sex: Male

DRUGS (2)
  1. VENCLEXTA [Suspect]
     Active Substance: VENETOCLAX
     Indication: Acute myeloid leukaemia
     Dosage: DURATION TEXT: 1 CYCLE
     Route: 048
  2. AZACITIDINE [Suspect]
     Active Substance: AZACITIDINE
     Indication: Acute myeloid leukaemia
     Route: 058

REACTIONS (6)
  - Acute myeloid leukaemia [Fatal]
  - Multiple organ dysfunction syndrome [Unknown]
  - Blast cell count increased [Recovering/Resolving]
  - Mucosal disorder [Unknown]
  - Venoocclusive liver disease [Unknown]
  - Pneumonia [Unknown]
